FAERS Safety Report 8062547-9 (Version None)
Quarter: 2011Q4

REPORT INFORMATION
  Report Type: 
  Country: None (occurrence: None)
  Receive Date: 20111221
  Receipt Date: 20110906
  Transmission Date: 20120403
  Serious: Yes (Other)
  Sender: FDA-Public Use
  Company Number: AUR-APL-2011-04878

PATIENT
  Sex: Male

DRUGS (6)
  1. NAMENDA [Concomitant]
  2. FLUOXETINE [Concomitant]
  3. METFORMIN HCL [Concomitant]
  4. MIRTAZAPINE [Suspect]
     Indication: DEPRESSION
     Dosage: (15 MG, 1 D), ORAL
     Route: 048
     Dates: start: 20110819, end: 20110829
  5. MIRTAZAPINE [Suspect]
     Indication: DEMENTIA ALZHEIMER'S TYPE
     Dosage: (15 MG, 1 D), ORAL
     Route: 048
     Dates: start: 20110819, end: 20110829
  6. ATIVAN [Concomitant]

REACTIONS (5)
  - RESTLESSNESS [None]
  - NERVOUSNESS [None]
  - AMNESIA [None]
  - POOR QUALITY SLEEP [None]
  - CONFUSIONAL STATE [None]
